FAERS Safety Report 25385183 (Version 1)
Quarter: 2025Q2

REPORT INFORMATION
  Report Type: Spontaneous
  Country: US (occurrence: None)
  Receive Date: 20250602
  Receipt Date: 20250602
  Transmission Date: 20250717
  Serious: Yes (Disabling)
  Sender: FDA-CTU
  Company Number: None

PATIENT
  Age: 70 Year
  Sex: Male
  Weight: 85.5 kg

DRUGS (14)
  1. METHADONE HYDROCHLORIDE [Suspect]
     Active Substance: METHADONE HYDROCHLORIDE
     Indication: Spinal stenosis
     Dosage: OTHER QUANTITY : 1 TABLET(S);?FREQUENCY : EVERY 8 HOURS;?
     Route: 048
  2. METHADONE HYDROCHLORIDE [Suspect]
     Active Substance: METHADONE HYDROCHLORIDE
     Indication: Exostosis
  3. METHADONE HYDROCHLORIDE [Suspect]
     Active Substance: METHADONE HYDROCHLORIDE
     Indication: Bursitis
  4. METHADONE HYDROCHLORIDE [Suspect]
     Active Substance: METHADONE HYDROCHLORIDE
     Indication: Arthritis
  5. METHADONE HYDROCHLORIDE [Suspect]
     Active Substance: METHADONE HYDROCHLORIDE
     Indication: Restless arm syndrome
  6. PERCOCET [Suspect]
     Active Substance: ACETAMINOPHEN\OXYCODONE HYDROCHLORIDE
  7. LISINOPRIL [Concomitant]
     Active Substance: LISINOPRIL
  8. ATORVASTATIN [Concomitant]
     Active Substance: ATORVASTATIN
  9. Pramipexole Di [Concomitant]
  10. ALFUZOSIN [Concomitant]
     Active Substance: ALFUZOSIN
  11. METHADONE [Concomitant]
     Active Substance: METHADONE HYDROCHLORIDE
  12. TIZANIDINE [Concomitant]
     Active Substance: TIZANIDINE
  13. GABAPENTIN [Concomitant]
     Active Substance: GABAPENTIN
  14. lubuprophen [Concomitant]

REACTIONS (4)
  - Therapy change [None]
  - Withdrawal syndrome [None]
  - Feeling abnormal [None]
  - Victim of abuse [None]

NARRATIVE: CASE EVENT DATE: 20250318
